FAERS Safety Report 4443252-4 (Version None)
Quarter: 2004Q3

REPORT INFORMATION
  Report Type: 
  Country: None (occurrence: None)
  Receive Date: 20040903
  Receipt Date: 20040903
  Transmission Date: 20050211
  Serious: Yes (Hospitalization)
  Sender: FDA-Public Use
  Company Number: None

PATIENT
  Sex: Female
  Weight: 68.0396 kg

DRUGS (1)
  1. DEXTRO AMPHETAMINE SULFATE TAB [Suspect]
     Indication: ATTENTION DEFICIT/HYPERACTIVITY DISORDER
     Dosage: 2 PILLS   DAILY

REACTIONS (7)
  - EUPHORIC MOOD [None]
  - FEELING ABNORMAL [None]
  - IMPATIENCE [None]
  - NIGHTMARE [None]
  - PSYCHOTIC DISORDER [None]
  - SLEEP DISORDER [None]
  - SUICIDAL IDEATION [None]
